FAERS Safety Report 9227881 (Version 1)
Quarter: 2013Q2

REPORT INFORMATION
  Report Type: Spontaneous
  Country: FR (occurrence: FR)
  Receive Date: 20130412
  Receipt Date: 20130412
  Transmission Date: 20140414
  Serious: Yes (Hospitalization, Other)
  Sender: FDA-Public Use
  Company Number: FR-PFIZER INC-2013110962

PATIENT
  Age: 64 Year
  Sex: Female

DRUGS (6)
  1. FLUOROURACILE PFIZER [Suspect]
     Indication: ADENOCARCINOMA
     Dosage: UNK
     Route: 042
     Dates: start: 20130219, end: 20130221
  2. CIBADREX [Concomitant]
  3. TANGANIL [Concomitant]
  4. TENSTATEN [Concomitant]
  5. TRANDATE [Concomitant]
  6. TARDYFERON [Concomitant]

REACTIONS (1)
  - Acute coronary syndrome [Recovering/Resolving]
